FAERS Safety Report 4825533-5 (Version None)
Quarter: 2005Q4

REPORT INFORMATION
  Report Type: 
  Country: None (occurrence: None)
  Receive Date: 20051111
  Receipt Date: 20050816
  Transmission Date: 20060501
  Serious: No
  Sender: FDA-Public Use
  Company Number: US-GLAXOSMITHKLINE-A0570429A

PATIENT
  Age: 85 Year
  Sex: Male

DRUGS (7)
  1. AVODART [Suspect]
     Indication: BENIGN PROSTATIC HYPERPLASIA
     Dosage: 1CAP PER DAY
     Route: 048
     Dates: start: 20050816, end: 20050821
  2. FLONASE [Suspect]
     Indication: ILL-DEFINED DISORDER
     Route: 045
  3. FLOVENT [Suspect]
     Indication: ILL-DEFINED DISORDER
     Route: 055
  4. TERAZOSIN [Suspect]
     Indication: HYPERTENSION
     Route: 048
  5. TOPROL-XL [Concomitant]
  6. PLAVIX [Concomitant]
  7. ASPIRIN [Concomitant]

REACTIONS (6)
  - DIZZINESS [None]
  - DRUG INEFFECTIVE [None]
  - FLATULENCE [None]
  - ILL-DEFINED DISORDER [None]
  - INSOMNIA [None]
  - URINARY RETENTION [None]
